FAERS Safety Report 10101690 (Version 2)
Quarter: 2014Q2

REPORT INFORMATION
  Report Type: Report from Study
  Country: MX (occurrence: MX)
  Receive Date: 20140424
  Receipt Date: 20140613
  Transmission Date: 20141212
  Serious: No
  Sender: FDA-Public Use
  Company Number: MX-ORION CORPORATION ORION PHARMA-ENTC2014-0142

PATIENT
  Sex: Male
  Weight: 82 kg

DRUGS (5)
  1. STALEVO [Suspect]
     Indication: EXTRAPYRAMIDAL DISORDER
     Dosage: STRENGTH: 100/25/200 MG
     Route: 048
  2. STALEVO [Suspect]
     Dosage: STRENGTH: 100/25/200 MG
     Route: 048
  3. STALEVO [Suspect]
     Dosage: STRENGTH: 150/37.5/200 MG
     Route: 048
     Dates: start: 20140207
  4. TRILEPTAL [Suspect]
     Indication: EMOTIONAL DISORDER
     Route: 048
     Dates: start: 2002
  5. HALDOL DECANOAS [Concomitant]
     Route: 065

REACTIONS (2)
  - Off label use [Unknown]
  - Wrong technique in drug usage process [Unknown]
